FAERS Safety Report 8607862 (Version 3)
Quarter: 2014Q1

REPORT INFORMATION
  Report Type: Spontaneous
  Country: US (occurrence: US)
  Receive Date: 20120611
  Receipt Date: 20140128
  Transmission Date: 20141002
  Serious: Yes (Hospitalization)
  Sender: FDA-Public Use
  Company Number: US-ASTRAZENECA-2012SE34903

PATIENT
  Age: 72 Year
  Sex: Female

DRUGS (15)
  1. NEXIUM [Suspect]
     Indication: GASTROOESOPHAGEAL REFLUX DISEASE
     Route: 048
     Dates: start: 2005, end: 2010
  2. NEXIUM [Suspect]
     Indication: HYPERCHLORHYDRIA
     Route: 048
     Dates: start: 2005, end: 2010
  3. NEXIUM [Suspect]
     Indication: GASTROOESOPHAGEAL REFLUX DISEASE
     Route: 048
     Dates: start: 20070611
  4. NEXIUM [Suspect]
     Indication: HYPERCHLORHYDRIA
     Route: 048
     Dates: start: 20070611
  5. OMEPRAZOLE OTC [Suspect]
     Indication: GASTROOESOPHAGEAL REFLUX DISEASE
     Route: 048
     Dates: start: 2012
  6. OMEPRAZOLE OTC [Suspect]
     Indication: HYPERCHLORHYDRIA
     Route: 048
     Dates: start: 2012
  7. PANTOPRAZOLE [Suspect]
     Route: 065
     Dates: start: 2008, end: 2010
  8. PREVACID OTC [Concomitant]
     Indication: GASTROOESOPHAGEAL REFLUX DISEASE
     Route: 048
     Dates: start: 2013
  9. PREVACID OTC [Concomitant]
     Indication: HYPERCHLORHYDRIA
     Route: 048
     Dates: start: 2013
  10. TOPROL XL [Concomitant]
     Indication: HYPERTENSION
  11. TOPROL XL [Concomitant]
     Indication: CEREBROVASCULAR ACCIDENT
  12. LIPITOR [Concomitant]
     Indication: BLOOD CHOLESTEROL ABNORMAL
     Dosage: 40 TO 20 MG
  13. AMLODIPINE [Concomitant]
     Indication: HYPERTENSION
  14. CENTRUM SILVER [Concomitant]
  15. FISH OIL [Concomitant]

REACTIONS (14)
  - Diarrhoea [Unknown]
  - Hypokalaemia [Unknown]
  - Blood sodium decreased [Unknown]
  - Osteoporosis [Unknown]
  - Multiple fractures [Unknown]
  - Osteopenia [Unknown]
  - Back pain [Unknown]
  - Bone loss [Unknown]
  - Scoliosis [Unknown]
  - Bone disorder [Unknown]
  - Chest pain [Unknown]
  - Cataract [Unknown]
  - Osteoarthritis [Unknown]
  - Arthralgia [Unknown]
